FAERS Safety Report 26035553 (Version 1)
Quarter: 2025Q4

REPORT INFORMATION
  Report Type: Spontaneous
  Country: US (occurrence: US)
  Receive Date: 20251112
  Receipt Date: 20251112
  Transmission Date: 20260118
  Serious: Yes (Death, Other)
  Sender: CIPLA
  Company Number: US-BMS-IMIDS-REMS-SI-1761946955962

PATIENT

DRUGS (1)
  1. LENALIDOMIDE [Suspect]
     Active Substance: LENALIDOMIDE
     Indication: Product used for unknown indication
     Dosage: 10 MILLIGRAM, UNK
     Route: 065
     Dates: start: 20250411

REACTIONS (2)
  - Myelodysplastic syndrome [Fatal]
  - Failure to thrive [Fatal]

NARRATIVE: CASE EVENT DATE: 20250101
